FAERS Safety Report 8918587 (Version 2)
Quarter: 2014Q2

REPORT INFORMATION
  Report Type: Spontaneous
  Country: US (occurrence: US)
  Receive Date: 20121120
  Receipt Date: 20140417
  Transmission Date: 20141212
  Serious: No
  Sender: FDA-Public Use
  Company Number: US-ASTRAZENECA-2012SE19321

PATIENT
  Age: 37 Year
  Sex: Female

DRUGS (2)
  1. NEXIUM [Suspect]
     Route: 048
  2. NEXIUM [Suspect]
     Route: 048

REACTIONS (5)
  - Sleep disorder due to a general medical condition [Not Recovered/Not Resolved]
  - Abdominal pain upper [Unknown]
  - Drug dose omission [Unknown]
  - Intentional product misuse [Unknown]
  - Drug ineffective [Unknown]
